FAERS Safety Report 18141745 (Version 13)
Quarter: 2025Q1

REPORT INFORMATION
  Report Type: Report from Study
  Country: US (occurrence: US)
  Receive Date: 20200812
  Receipt Date: 20250102
  Transmission Date: 20250408
  Serious: Yes (Hospitalization, Other)
  Sender: TAKEDA
  Company Number: US-TAKEDA-2020TUS034132

PATIENT
  Age: 28 Year
  Sex: Female
  Weight: 127.6 kg

DRUGS (17)
  1. PONATINIB [Suspect]
     Active Substance: PONATINIB
     Indication: Chronic myeloid leukaemia
     Dosage: 45 MILLIGRAM, QD
     Dates: start: 20200624
  2. PONATINIB [Suspect]
     Active Substance: PONATINIB
     Dosage: 15 MILLIGRAM, BID
  3. PONATINIB [Suspect]
     Active Substance: PONATINIB
  4. PONATINIB [Suspect]
     Active Substance: PONATINIB
     Dosage: 15 MILLIGRAM, QD
  5. MINERALS\VITAMINS [Concomitant]
     Active Substance: MINERALS\VITAMINS
  6. BACTRIM [Concomitant]
     Active Substance: SULFAMETHOXAZOLE\TRIMETHOPRIM
  7. TACROLIMUS [Concomitant]
     Active Substance: TACROLIMUS
  8. INSULIN LISPRO [Concomitant]
     Active Substance: INSULIN LISPRO
  9. OXYCODONE [Concomitant]
     Active Substance: OXYCODONE
  10. URSODIOL [Concomitant]
     Active Substance: URSODIOL
  11. GANCICLOVIR [Concomitant]
     Active Substance: GANCICLOVIR
  12. MYCOPHENOLIC ACID [Concomitant]
     Active Substance: MYCOPHENOLIC ACID
  13. TYLENOL [Concomitant]
     Active Substance: ACETAMINOPHEN
  14. CHOLECALCIFEROL [Concomitant]
     Active Substance: CHOLECALCIFEROL
  15. VITAMIN B12 [Concomitant]
     Active Substance: CYANOCOBALAMIN
  16. FLUCONAZOLE [Concomitant]
     Active Substance: FLUCONAZOLE
  17. VITAMIN B3 [Concomitant]
     Active Substance: NIACIN

REACTIONS (12)
  - Catheter site infection [Unknown]
  - Hypersensitivity [Unknown]
  - Myocardial infarction [Unknown]
  - Red blood cell count decreased [Unknown]
  - Malaise [Recovered/Resolved]
  - Rash [Unknown]
  - Product dose omission issue [Unknown]
  - Inappropriate schedule of product administration [Unknown]
  - Product use issue [Recovering/Resolving]
  - Platelet count decreased [Unknown]
  - Pyrexia [Unknown]
  - Pain [Unknown]

NARRATIVE: CASE EVENT DATE: 20210310
